FAERS Safety Report 20609600 (Version 1)
Quarter: 2022Q1

REPORT INFORMATION
  Report Type: Spontaneous
  Country: CA (occurrence: CA)
  Receive Date: 20220318
  Receipt Date: 20220318
  Transmission Date: 20220423
  Serious: Yes (Other)
  Sender: FDA-Public Use
  Company Number: CA-AUROBINDO-AUR-APL-2022-008333

PATIENT
  Age: 69 Year
  Sex: Male

DRUGS (2)
  1. CLOPIDOGREL [Suspect]
     Active Substance: CLOPIDOGREL BISULFATE
     Indication: Product used for unknown indication
     Dosage: UNK
     Route: 065
  2. IMBRUVICA [Suspect]
     Active Substance: IBRUTINIB
     Indication: Mantle cell lymphoma
     Dosage: 520 MILLIGRAM, 5 TIMES A DAY
     Route: 048

REACTIONS (6)
  - Cardiac disorder [Unknown]
  - Haemorrhage [Unknown]
  - Stress [Unknown]
  - Drug interaction [Unknown]
  - Incorrect dose administered [Unknown]
  - Off label use [Unknown]
